FAERS Safety Report 23988610 (Version 1)
Quarter: 2024Q2

REPORT INFORMATION
  Report Type: Spontaneous
  Country: US (occurrence: US)
  Receive Date: 20240619
  Receipt Date: 20240619
  Transmission Date: 20240716
  Serious: No
  Sender: FDA-Public Use
  Company Number: US-Accord-362345

PATIENT
  Sex: Male
  Weight: 99.79 kg

DRUGS (1)
  1. OLMESARTAN MEDOXOMIL [Suspect]
     Active Substance: OLMESARTAN MEDOXOMIL
     Indication: Hypertension
     Dosage: ONCE DAILY
     Route: 048
     Dates: start: 20230505

REACTIONS (1)
  - Product label issue [Unknown]
